FAERS Safety Report 6944777-X (Version None)
Quarter: 2010Q3

REPORT INFORMATION
  Report Type: 
  Country: None (occurrence: None)
  Receive Date: 20100827
  Receipt Date: 20100823
  Transmission Date: 20110219
  Serious: Yes (Disabling)
  Sender: FDA-Public Use
  Company Number: US-BAYER-201031366NA

PATIENT
  Age: 43 Year
  Sex: Female

DRUGS (2)
  1. CLIMARA [Suspect]
     Indication: AUTONOMIC NERVOUS SYSTEM IMBALANCE
     Route: 023
     Dates: start: 20060101
  2. ESTROGEL [Concomitant]

REACTIONS (14)
  - ABDOMINAL DISTENSION [None]
  - ALOPECIA [None]
  - ANXIETY [None]
  - BREAST ENLARGEMENT [None]
  - BREAST TENDERNESS [None]
  - CRYING [None]
  - DEPRESSION [None]
  - HEADACHE [None]
  - HYPOTHYROIDISM [None]
  - IMPAIRED WORK ABILITY [None]
  - PALPITATIONS [None]
  - PANIC ATTACK [None]
  - THYROID FUNCTION TEST ABNORMAL [None]
  - TREMOR [None]
